FAERS Safety Report 6326922-2 (Version None)
Quarter: 2009Q3

REPORT INFORMATION
  Report Type: 
  Country: None (occurrence: None)
  Receive Date: 20090825
  Receipt Date: 20090818
  Transmission Date: 20100115
  Serious: Yes (Other)
  Sender: FDA-Public Use
  Company Number: JP-JNJFOC-20090802235

PATIENT
  Age: 58 Year
  Sex: Male

DRUGS (3)
  1. DUROTEP MT PATCH [Suspect]
     Dosage: 2 PATCHES OF 25 UG/HR
     Route: 062
  2. DUROTEP MT PATCH [Suspect]
     Dosage: 3 PATCHES OF 12.5 UG/HR
     Route: 062
  3. DUROTEP MT PATCH [Suspect]
     Indication: CANCER PAIN
     Route: 062

REACTIONS (6)
  - DIZZINESS [None]
  - FALL [None]
  - HAEMATEMESIS [None]
  - PYREXIA [None]
  - SOMNOLENCE [None]
  - WRONG TECHNIQUE IN DRUG USAGE PROCESS [None]
